FAERS Safety Report 18456477 (Version 1)
Quarter: 2020Q4

REPORT INFORMATION
  Report Type: Spontaneous
  Country: US (occurrence: US)
  Receive Date: 20201102
  Receipt Date: 20201102
  Transmission Date: 20210114
  Serious: No
  Sender: FDA-Public Use
  Company Number: None

PATIENT
  Age: 74 Year
  Sex: Male

DRUGS (1)
  1. ZYTIGA [Suspect]
     Active Substance: ABIRATERONE ACETATE
     Route: 048
     Dates: start: 202008

REACTIONS (4)
  - Gastroenteritis viral [None]
  - Vomiting [None]
  - Food poisoning [None]
  - Diarrhoea [None]

NARRATIVE: CASE EVENT DATE: 20201031
